FAERS Safety Report 7970065-9 (Version None)
Quarter: 2011Q4

REPORT INFORMATION
  Report Type: 
  Country: None (occurrence: None)
  Receive Date: 20111212
  Receipt Date: 20111207
  Transmission Date: 20120403
  Serious: Yes (Death)
  Sender: FDA-Public Use
  Company Number: FR-JNJFOC-20111203574

PATIENT

DRUGS (8)
  1. LEPTICUR [Suspect]
     Indication: FOETAL EXPOSURE DURING PREGNANCY
     Route: 064
     Dates: start: 20090220, end: 20090828
  2. DEPAKOTE [Concomitant]
     Indication: FOETAL EXPOSURE DURING PREGNANCY
     Route: 064
  3. HALDOL [Suspect]
     Indication: FOETAL EXPOSURE DURING PREGNANCY
     Route: 064
     Dates: end: 20090828
  4. LOXAPINE HCL [Suspect]
     Indication: FOETAL EXPOSURE DURING PREGNANCY
     Route: 064
     Dates: start: 20090220, end: 20090828
  5. TEGRETOL [Concomitant]
     Indication: FOETAL EXPOSURE DURING PREGNANCY
     Dosage: WITHDRAWN BEFORE 23-JUN-2009 (20 WEEKS OF AMENORRHEA)
     Route: 064
     Dates: start: 20090220
  6. NOZINAN [Suspect]
     Indication: FOETAL EXPOSURE DURING PREGNANCY
     Route: 064
     Dates: end: 20090828
  7. CLONAZEPAM [Suspect]
     Indication: FOETAL EXPOSURE DURING PREGNANCY
     Route: 064
     Dates: start: 20090623, end: 20090828
  8. CHLORPROMAZINE HCL [Suspect]
     Indication: FOETAL EXPOSURE DURING PREGNANCY
     Route: 064
     Dates: start: 20090623, end: 20090828

REACTIONS (5)
  - OEDEMA [None]
  - CHORIOAMNIONITIS [None]
  - INTRA-UTERINE DEATH [None]
  - PLACENTAL INFARCTION [None]
  - BONE DEFORMITY [None]
